FAERS Safety Report 4359893-9 (Version None)
Quarter: 2004Q2

REPORT INFORMATION
  Report Type: 
  Country: None (occurrence: None)
  Receive Date: 20040518
  Receipt Date: 20040518
  Transmission Date: 20050107
  Serious: Yes (Other)
  Sender: FDA-Public Use
  Company Number: None

PATIENT
  Sex: Male
  Weight: 78.9259 kg

DRUGS (7)
  1. FLEBOGAMMA 5% 10 GM GRIFOLS [Suspect]
     Indication: CHRONIC INFLAMMATORY DEMYELINATING POLYRADICULONEUROPATHY
     Dosage: 40 GM QD X 2D Q2 INTRAVENOUS
     Route: 042
     Dates: start: 20040312, end: 20040413
  2. AVELOX [Concomitant]
  3. DOXYCYCLINE [Concomitant]
  4. ALAVERT [Concomitant]
  5. APAP TAB [Concomitant]
  6. WELLBUTRIN [Concomitant]
  7. SOLU-MEDROL [Concomitant]

REACTIONS (2)
  - PHARMACEUTICAL PRODUCT COMPLAINT [None]
  - SOMNOLENCE [None]
